FAERS Safety Report 5263049-5 (Version None)
Quarter: 2007Q1

REPORT INFORMATION
  Report Type: 
  Country: None (occurrence: None)
  Receive Date: 20070312
  Receipt Date: 20070306
  Transmission Date: 20070707
  Serious: Yes (Other)
  Sender: FDA-Public Use
  Company Number: US-BOEHRINGER INGELHEIM PHARMACEUTICALS, INC.-2007-BP-03236PF

PATIENT
  Sex: Female
  Weight: 58 kg

DRUGS (8)
  1. SPIRIVA [Suspect]
     Indication: CHRONIC OBSTRUCTIVE PULMONARY DISEASE
     Route: 055
     Dates: start: 20070101
  2. SPIRIVA [Suspect]
     Indication: ASTHMA
  3. SPIRIVA [Suspect]
     Indication: EMPHYSEMA
  4. CHANTIX [Suspect]
     Indication: SMOKING CESSATION THERAPY
     Dates: start: 20070217
  5. ADVAIR DISKUS 100/50 [Concomitant]
  6. SINGULAIR [Concomitant]
  7. WELLBUTRIN [Concomitant]
  8. FORTEO [Concomitant]

REACTIONS (6)
  - ABNORMAL DREAMS [None]
  - DRY EYE [None]
  - EYE IRRITATION [None]
  - EYE PAIN [None]
  - NAUSEA [None]
  - SLEEP DISORDER [None]
